FAERS Safety Report 12680006 (Version 1)
Quarter: 2016Q3

REPORT INFORMATION
  Report Type: Spontaneous
  Country: None (occurrence: None)
  Receive Date: 20160823
  Receipt Date: 20160823
  Transmission Date: 20161109
  Serious: Yes (Death)
  Sender: FDA-Public Use
  Company Number: None

PATIENT
  Age: 79 Year
  Sex: Male
  Weight: 54.5 kg

DRUGS (1)
  1. CETUXIMAB, 400MG/M2 [Suspect]
     Active Substance: CETUXIMAB
     Indication: LARYNGEAL CANCER
     Route: 042
     Dates: start: 20160722, end: 20160722

REACTIONS (2)
  - Sudden cardiac death [None]
  - Cardio-respiratory arrest [None]

NARRATIVE: CASE EVENT DATE: 20160722
